FAERS Safety Report 5913682-X (Version None)
Quarter: 2008Q3

REPORT INFORMATION
  Report Type: 
  Country: None (occurrence: None)
  Receive Date: 20080909
  Receipt Date: 20071114
  Transmission Date: 20090109
  Serious: Yes (Other)
  Sender: FDA-Public Use
  Company Number: 163-20785-07081267 (0)

PATIENT
  Age: 73 Year
  Sex: Male

DRUGS (4)
  1. THALOMID [Suspect]
     Indication: MULTIPLE MYELOMA
     Dosage: 150MG-200MG, DAILY, ORAL
     Route: 048
     Dates: start: 20060801, end: 20070901
  2. DECADRON [Concomitant]
  3. LASIX [Concomitant]
  4. VITAMIN B12 [Concomitant]

REACTIONS (2)
  - DEEP VEIN THROMBOSIS [None]
  - NEUROPATHY PERIPHERAL [None]
